FAERS Safety Report 5016349-8 (Version None)
Quarter: 2006Q2

REPORT INFORMATION
  Report Type: 
  Country: None (occurrence: None)
  Receive Date: 20060526
  Receipt Date: 20060512
  Transmission Date: 20061013
  Serious: Yes (Hospitalization, Other)
  Sender: FDA-Public Use
  Company Number: 2006BH009927

PATIENT
  Age: 74 Year
  Sex: Male

DRUGS (1)
  1. AMPICILLIN AND SULBACTAM [Suspect]
     Indication: PHARYNGOLARYNGEAL PAIN
     Dosage: 750 MG;2X A DAY
     Dates: start: 20030301, end: 20030301

REACTIONS (5)
  - CHOLESTASIS [None]
  - HEPATIC NECROSIS [None]
  - HEPATITIS TOXIC [None]
  - HEPATOTOXICITY [None]
  - LYMPHADENOPATHY [None]
